FAERS Safety Report 14175285 (Version 1)
Quarter: 2017Q4

REPORT INFORMATION
  Report Type: Spontaneous
  Country: US (occurrence: US)
  Receive Date: 20171109
  Receipt Date: 20171109
  Transmission Date: 20180321
  Serious: No
  Sender: FDA-Public Use
  Company Number: US-SA-2017SA150319

PATIENT
  Age: 60 Year
  Sex: Female

DRUGS (2)
  1. XYZAL ALLERGY 24HR [Suspect]
     Active Substance: LEVOCETIRIZINE DIHYDROCHLORIDE
     Indication: LACRIMATION INCREASED
     Dosage: 1 TABLET IN?EVENING
     Route: 065
     Dates: end: 20170811
  2. XYZAL ALLERGY 24HR [Suspect]
     Active Substance: LEVOCETIRIZINE DIHYDROCHLORIDE
     Indication: EYE PRURITUS
     Dosage: 1 TABLET IN?EVENING
     Route: 065
     Dates: end: 20170811

REACTIONS (1)
  - Drug ineffective [Unknown]
